FAERS Safety Report 9988258 (Version 2)
Quarter: 2014Q2

REPORT INFORMATION
  Report Type: Report from Study
  Country: JP (occurrence: JP)
  Receive Date: 20140310
  Receipt Date: 20140403
  Transmission Date: 20141212
  Serious: Yes (Death)
  Sender: FDA-Public Use
  Company Number: JP-ROCHE-1359958

PATIENT
  Age: 67 Year
  Sex: Male
  Weight: 60 kg

DRUGS (19)
  1. METHOXY POLYETHYLENE GLYCOL-EPOETIN BETA [Suspect]
     Indication: NEPHROGENIC ANAEMIA
     Route: 058
     Dates: start: 20111109, end: 20111214
  2. MICARDIS [Concomitant]
     Route: 048
     Dates: end: 20111223
  3. FERROMIA [Concomitant]
     Route: 048
     Dates: end: 20111223
  4. AMLODIN [Concomitant]
     Route: 048
     Dates: end: 20111223
  5. PLETAAL [Concomitant]
     Route: 048
     Dates: end: 20111223
  6. WARFARIN [Concomitant]
     Route: 048
     Dates: end: 20111115
  7. WARFARIN [Concomitant]
     Route: 048
     Dates: start: 20111116, end: 20111223
  8. ALFAROL [Concomitant]
     Route: 048
     Dates: end: 20111223
  9. CEROCRAL [Concomitant]
     Route: 048
     Dates: end: 20111223
  10. JUSO [Concomitant]
     Route: 048
     Dates: end: 20111223
  11. LOPEMIN [Concomitant]
     Route: 048
     Dates: end: 20111223
  12. PARIET [Concomitant]
     Route: 048
     Dates: end: 20111213
  13. DEPAS [Concomitant]
     Route: 048
     Dates: end: 20111123
  14. AMOBAN [Concomitant]
     Route: 048
     Dates: end: 20111223
  15. LASIX [Concomitant]
     Route: 048
     Dates: start: 20110810, end: 20111108
  16. LASIX [Concomitant]
     Route: 048
     Dates: start: 2011, end: 20111223
  17. RABEPRAZOLE SODIUM [Concomitant]
     Route: 048
     Dates: start: 20111214, end: 20111223
  18. NOVOLIN 30R [Concomitant]
     Route: 058
     Dates: end: 20111223
  19. LACTOMIN [Concomitant]
     Dosage: DRUG REPORTED AS : BIOFERMIN
     Route: 048
     Dates: end: 20111223

REACTIONS (1)
  - Diabetic nephropathy [Fatal]
